FAERS Safety Report 7537443-3 (Version None)
Quarter: 2011Q2

REPORT INFORMATION
  Report Type: 
  Country: None (occurrence: None)
  Receive Date: 20110603
  Receipt Date: 20110518
  Transmission Date: 20111010
  Serious: Yes (Hospitalization)
  Sender: FDA-Public Use
  Company Number: 2011MA006127

PATIENT
  Age: 12 Year
  Sex: Female
  Weight: 40 kg

DRUGS (3)
  1. FEVERALL [Suspect]
     Indication: POSTOPERATIVE ANALGESIA
     Dosage: 69;OD;RTL
     Route: 054
  2. DICLOFENAC SODIUM [Concomitant]
  3. HYDROMORPHINE [Concomitant]

REACTIONS (5)
  - POST PROCEDURAL COMPLICATION [None]
  - ACUTE HEPATIC FAILURE [None]
  - LIVER INJURY [None]
  - HAEMOTHORAX [None]
  - ENCEPHALOPATHY [None]
